FAERS Safety Report 9221969 (Version 2)
Quarter: 2013Q2

REPORT INFORMATION
  Report Type: Spontaneous
  Country: US (occurrence: US)
  Receive Date: 20130410
  Receipt Date: 20130422
  Transmission Date: 20140414
  Serious: No
  Sender: FDA-Public Use
  Company Number: US-PFIZER INC-2012080801

PATIENT
  Age: 36 Year
  Sex: Female

DRUGS (3)
  1. DEPO-PROVERA [Suspect]
     Dosage: 150 MG, EVERY 3 MONTHS
  2. RELPAX [Suspect]
     Indication: MIGRAINE
     Dosage: 40 MG, REPEAT ONCE AFTER 12 HRS
  3. VISTARIL [Suspect]
     Dosage: 50 MG, 3X/DAY

REACTIONS (1)
  - Accident at work [Unknown]
